FAERS Safety Report 23890930 (Version 1)
Quarter: 2024Q2

REPORT INFORMATION
  Report Type: Spontaneous
  Country: US (occurrence: US)
  Receive Date: 20240523
  Receipt Date: 20240523
  Transmission Date: 20240716
  Serious: No
  Sender: FDA-Public Use
  Company Number: US-MIMS-BCONMC-2923

PATIENT

DRUGS (1)
  1. INSULIN GLARGINE [Suspect]
     Active Substance: INSULIN GLARGINE
     Indication: Type 2 diabetes mellitus
     Dosage: 14 UNITS/ML QD
     Route: 058

REACTIONS (3)
  - Blood glucose decreased [Unknown]
  - Joint swelling [Unknown]
  - Fatigue [Unknown]

NARRATIVE: CASE EVENT DATE: 20240129
